FAERS Safety Report 9262134 (Version 3)
Quarter: 2013Q2

REPORT INFORMATION
  Report Type: Spontaneous
  Country: FI (occurrence: FI)
  Receive Date: 20130430
  Receipt Date: 20130603
  Transmission Date: 20140414
  Serious: Yes (Other)
  Sender: FDA-Public Use
  Company Number: FI-AMGEN-FINSP2013029030

PATIENT
  Age: 64 Year
  Sex: Male
  Weight: 88 kg

DRUGS (3)
  1. VECTIBIX [Suspect]
     Indication: COLORECTAL CANCER METASTATIC
     Dosage: 800 MG, ONCE
     Route: 042
     Dates: start: 20130402
  2. IRINOTECAN [Concomitant]
     Dosage: UNK
  3. CHEMOTHERAPEUTICS [Concomitant]
     Dosage: UNK
     Dates: start: 2012

REACTIONS (6)
  - Myocardial infarction [Unknown]
  - Blood calcium abnormal [Unknown]
  - Blood magnesium abnormal [Unknown]
  - Laboratory test abnormal [Unknown]
  - Asthenia [Unknown]
  - Blood magnesium decreased [Unknown]
